FAERS Safety Report 13423860 (Version 2)
Quarter: 2017Q4

REPORT INFORMATION
  Report Type: Spontaneous
  Country: DE (occurrence: DE)
  Receive Date: 20170410
  Receipt Date: 20171024
  Transmission Date: 20180320
  Serious: Yes (Death, Life-Threatening, Hospitalization)
  Sender: FDA-Public Use
  Company Number: DE-JNJFOC-20170303452

PATIENT
  Sex: Male
  Weight: 75 kg

DRUGS (12)
  1. BERLINSULIN H NORMAL [Concomitant]
     Active Substance: INSULIN NOS
     Indication: DIABETES MELLITUS
     Route: 065
  2. METOHEXAL SUCC [Concomitant]
     Active Substance: METOPROLOL SUCCINATE
     Indication: PRODUCT USED FOR UNKNOWN INDICATION
     Route: 065
  3. PANTOPRAZOL TAD [Concomitant]
     Active Substance: PANTOPRAZOLE SODIUM
     Indication: PRODUCT USED FOR UNKNOWN INDICATION
     Route: 065
  4. INSULIN GLARGINE [Concomitant]
     Active Substance: INSULIN GLARGINE
     Indication: DIABETES MELLITUS
     Route: 065
  5. TAVOR (LORAZEPAM) [Concomitant]
     Active Substance: LORAZEPAM
     Indication: PRODUCT USED FOR UNKNOWN INDICATION
     Route: 065
  6. RISPERDAL [Concomitant]
     Active Substance: RISPERIDONE
     Indication: PRODUCT USED FOR UNKNOWN INDICATION
     Route: 048
  7. XEPLION [Suspect]
     Active Substance: PALIPERIDONE PALMITATE
     Indication: AGGRESSION
     Route: 030
     Dates: start: 20170131, end: 201703
  8. RISPERDAL CONSTA [Suspect]
     Active Substance: RISPERIDONE
     Indication: PRODUCT USED FOR UNKNOWN INDICATION
     Route: 030
     Dates: start: 201703
  9. DIAZEPAM. [Concomitant]
     Active Substance: DIAZEPAM
     Indication: PRODUCT USED FOR UNKNOWN INDICATION
     Route: 065
  10. XEPLION [Suspect]
     Active Substance: PALIPERIDONE PALMITATE
     Indication: ILLUSION
     Route: 030
     Dates: start: 20170131, end: 201703
  11. XARELTO [Concomitant]
     Active Substance: RIVAROXABAN
     Indication: PRODUCT USED FOR UNKNOWN INDICATION
     Route: 048
  12. TORASEMID AL [Concomitant]
     Active Substance: TORSEMIDE
     Indication: PRODUCT USED FOR UNKNOWN INDICATION
     Route: 065

REACTIONS (10)
  - Pulmonary oedema [Unknown]
  - Off label use [Unknown]
  - Product use in unapproved indication [Unknown]
  - Arrhythmia [Fatal]
  - Overdose [Fatal]
  - Fall [Unknown]
  - Respiratory disorder [Unknown]
  - Dysphagia [Unknown]
  - Cachexia [Unknown]
  - Hypophagia [Unknown]
